FAERS Safety Report 21941090 (Version 1)
Quarter: 2023Q1

REPORT INFORMATION
  Report Type: Report from Study
  Country: US (occurrence: US)
  Receive Date: 20230202
  Receipt Date: 20230202
  Transmission Date: 20230418
  Serious: No
  Sender: FDA-Public Use
  Company Number: US-EXELIXIS-CABO-22053428

PATIENT
  Age: 49 Year
  Sex: Female

DRUGS (2)
  1. CABOMETYX [Suspect]
     Active Substance: CABOZANTINIB S-MALATE
     Indication: Product used for unknown indication
     Dosage: 40 MG, QD
     Route: 048
     Dates: start: 20220617
  2. CABOMETYX [Suspect]
     Active Substance: CABOZANTINIB S-MALATE
     Dosage: 40 MG, QD
     Route: 048
     Dates: start: 202208

REACTIONS (9)
  - Ageusia [Unknown]
  - Hypoaesthesia oral [Unknown]
  - Skin ulcer [Unknown]
  - Hypotension [Unknown]
  - Nausea [Recovered/Resolved]
  - Dry mouth [Unknown]
  - Dyspnoea [Unknown]
  - Dysphonia [Unknown]
  - Diarrhoea [Recovering/Resolving]

NARRATIVE: CASE EVENT DATE: 20220617
